FAERS Safety Report 24378105 (Version 2)
Quarter: 2024Q4

REPORT INFORMATION
  Report Type: Spontaneous
  Country: IN (occurrence: IN)
  Receive Date: 20240930
  Receipt Date: 20241001
  Transmission Date: 20250115
  Serious: Yes (Death)
  Sender: GE HEALTHCARE
  Company Number: IN-GE HEALTHCARE-2024CSU010826

PATIENT
  Age: 21 Year
  Sex: Male

DRUGS (1)
  1. OMNIPAQUE [Suspect]
     Active Substance: IOHEXOL
     Indication: Computerised tomogram abdomen
     Dosage: 80 ML, TOTAL
     Route: 042

REACTIONS (2)
  - Anaphylactic shock [Fatal]
  - Disseminated intravascular coagulation [Fatal]
